FAERS Safety Report 23307959 (Version 1)
Quarter: 2023Q4

REPORT INFORMATION
  Report Type: Spontaneous
  Country: GB (occurrence: GB)
  Receive Date: 20231218
  Receipt Date: 20231218
  Transmission Date: 20240110
  Serious: Yes (Hospitalization)
  Sender: FDA-Public Use
  Company Number: GB-TEVA-VS-3136439

PATIENT
  Age: 31 Year

DRUGS (5)
  1. TACROLIMUS [Suspect]
     Active Substance: TACROLIMUS
     Indication: Still^s disease
     Route: 065
  2. METHYLPREDNISOLONE [Concomitant]
     Active Substance: METHYLPREDNISOLONE
     Indication: Product used for unknown indication
     Route: 065
  3. MYCOPHENOLIC ACID [Suspect]
     Active Substance: MYCOPHENOLIC ACID
     Indication: Still^s disease
     Route: 065
  4. PREDNISOLONE [Suspect]
     Active Substance: PREDNISOLONE
     Indication: Still^s disease
     Route: 065
  5. ACETYLCYSTEINE [Concomitant]
     Active Substance: ACETYLCYSTEINE
     Indication: Product used for unknown indication
     Route: 065

REACTIONS (2)
  - Sepsis [Unknown]
  - Cytomegalovirus viraemia [Unknown]
